FAERS Safety Report 4895558-2 (Version None)
Quarter: 2006Q1

REPORT INFORMATION
  Report Type: 
  Country: None (occurrence: None)
  Receive Date: 20060125
  Receipt Date: 20060113
  Transmission Date: 20060701
  Serious: Yes (Other)
  Sender: FDA-Public Use
  Company Number: 2006008743

PATIENT
  Sex: Female

DRUGS (4)
  1. NORVASC [Suspect]
     Indication: ILL-DEFINED DISORDER
  2. PLAVIX [Concomitant]
  3. ZOCOR [Concomitant]
  4. WARFAIN SODIUM (WARFARIN SODIUM) [Concomitant]

REACTIONS (4)
  - LOWER LIMB FRACTURE [None]
  - SKIN DISCOLOURATION [None]
  - STENT PLACEMENT [None]
  - SURGERY [None]
